FAERS Safety Report 21076410 (Version 1)
Quarter: 2022Q3

REPORT INFORMATION
  Report Type: Spontaneous
  Country: US (occurrence: None)
  Receive Date: 20220713
  Receipt Date: 20220713
  Transmission Date: 20221026
  Serious: No
  Sender: FDA-Public Use
  Company Number: None

PATIENT
  Age: 53 Year
  Sex: Female
  Weight: 85.5 kg

DRUGS (1)
  1. ROSUVASTATIN [Suspect]
     Active Substance: ROSUVASTATIN
     Indication: Hypercholesterolaemia
     Route: 048
     Dates: start: 20180605

REACTIONS (5)
  - Muscle spasms [None]
  - Fatigue [None]
  - Amnesia [None]
  - Pollakiuria [None]
  - Myalgia [None]

NARRATIVE: CASE EVENT DATE: 20220701
